FAERS Safety Report 5930221-8 (Version None)
Quarter: 2008Q4

REPORT INFORMATION
  Report Type: 
  Country: None (occurrence: None)
  Receive Date: 20081009
  Receipt Date: 20080321
  Transmission Date: 20090506
  Serious: Yes (Hospitalization)
  Sender: FDA-Public Use
  Company Number: PHEH2008US03035

PATIENT
  Age: 64 Year
  Sex: Male

DRUGS (11)
  1. ZOMETA [Suspect]
     Dates: start: 20050407, end: 20060406
  2. SUNITINIB MALATE (SUNITINIB MALATE) [Suspect]
     Indication: METASTATIC RENAL CELL CARCINOMA
     Dosage: 37.5 MG, ORAL
     Route: 048
     Dates: start: 20040730
  3. SYNTHROID [Concomitant]
  4. OXYCODONE HCL [Concomitant]
  5. LISINOPRIL [Concomitant]
  6. IBUPROFEN [Concomitant]
  7. PEPTO-BISMOL (BISMUTH SUBSALICYLATE) [Concomitant]
  8. MIRALAX [Concomitant]
  9. ALKA-SELTZER /USA/ (ACETYLSALICYLIC ACID, CITRIC ACID, SODIUM BICARBON [Concomitant]
  10. PENICILLINE ^CHIBRET^ (BENZYLPENICILLIN) [Concomitant]
  11. VITAMIN D [Concomitant]

REACTIONS (1)
  - OSTEONECROSIS [None]
